FAERS Safety Report 4605547-0 (Version None)
Quarter: 2005Q1

REPORT INFORMATION
  Report Type: 
  Country: None (occurrence: None)
  Receive Date: 20050310
  Receipt Date: 20040924
  Transmission Date: 20050727
  Serious: No
  Sender: FDA-Public Use
  Company Number: US-BRISTOL-MYERS SQUIBB COMPANY-12712733

PATIENT
  Age: 20 Year
  Sex: Female
  Weight: 71 kg

DRUGS (3)
  1. VAGISTAT-1 [Suspect]
     Indication: VAGINAL MYCOSIS
     Route: 067
     Dates: start: 20040923, end: 20040923
  2. DEPO-PROVERA [Concomitant]
  3. VITAMINS [Concomitant]

REACTIONS (3)
  - VAGINAL MYCOSIS [None]
  - VAGINAL SWELLING [None]
  - VULVOVAGINAL DISCOMFORT [None]
